FAERS Safety Report 4662517-4 (Version None)
Quarter: 2005Q2

REPORT INFORMATION
  Report Type: 
  Country: None (occurrence: None)
  Receive Date: 20050516
  Receipt Date: 20050404
  Transmission Date: 20051028
  Serious: Yes (Death, Hospitalization)
  Sender: FDA-Public Use
  Company Number: US-ROCHE-400607

PATIENT
  Age: 37 Year
  Sex: Male
  Weight: 96.2 kg

DRUGS (12)
  1. PEG-INTERFERON ALFA 2A (RO 25-8310) [Suspect]
     Route: 058
     Dates: start: 20041105, end: 20050309
  2. VIRAMIDINE [Suspect]
     Route: 048
     Dates: start: 20041105, end: 20050314
  3. ALBUTEROL [Concomitant]
     Dates: start: 20050314
  4. NASONEX [Concomitant]
  5. PROZAC [Concomitant]
     Dates: start: 20050317
  6. ADVAIR DISKUS 100/50 [Concomitant]
     Dates: start: 20040115
  7. FLEXERIL [Concomitant]
     Dates: start: 20040115
  8. MOTRIN [Concomitant]
     Dates: start: 20041105
  9. NORFLEX [Concomitant]
     Dates: start: 20050317
  10. FIORICET [Concomitant]
     Dates: start: 20040223
  11. SINGULAIR [Concomitant]
     Dates: start: 20050317
  12. BECONASE [Concomitant]
     Dates: start: 20050317

REACTIONS (4)
  - ASTHMA [None]
  - DEATH [None]
  - DRUG ABUSER [None]
  - OVERDOSE [None]
